FAERS Safety Report 12656292 (Version 1)
Quarter: 2016Q3

REPORT INFORMATION
  Report Type: Spontaneous
  Country: US (occurrence: US)
  Receive Date: 20160816
  Receipt Date: 20160816
  Transmission Date: 20161109
  Serious: No
  Sender: FDA-Public Use
  Company Number: US-ENDO PHARMACEUTICALS INC.-2014ZX000272

PATIENT
  Age: 52 Year
  Sex: Female

DRUGS (1)
  1. SUMAVEL DOSEPRO [Suspect]
     Active Substance: SUMATRIPTAN SUCCINATE
     Indication: MIGRAINE
     Dosage: UNKNOWN
     Route: 065
     Dates: start: 201401

REACTIONS (10)
  - Accidental exposure to product [Recovered/Resolved]
  - Injection site haemorrhage [Unknown]
  - Underdose [Recovered/Resolved]
  - Device malfunction [Unknown]
  - Discomfort [Unknown]
  - Injection site pain [Unknown]
  - Drug administered at inappropriate site [Recovered/Resolved]
  - Drug ineffective [Recovered/Resolved]
  - Injection site injury [Unknown]
  - Injection site swelling [Unknown]

NARRATIVE: CASE EVENT DATE: 2014
